FAERS Safety Report 23993502 (Version 3)
Quarter: 2025Q1

REPORT INFORMATION
  Report Type: Spontaneous
  Country: US (occurrence: US)
  Receive Date: 20240620
  Receipt Date: 20250109
  Transmission Date: 20250409
  Serious: No
  Sender: DR REDDYS
  Company Number: US-drreddys-SPO/USA/23/0188002

PATIENT
  Age: 24 Year
  Sex: Female
  Weight: 80.74 kg

DRUGS (14)
  1. JAVYGTOR [Suspect]
     Active Substance: SAPROPTERIN DIHYDROCHLORIDE
     Indication: Phenylketonuria
     Dosage: ONCE DAILY WITH MEAL AS DIRECTED
     Route: 048
     Dates: start: 2023
  2. JAVYGTOR [Suspect]
     Active Substance: SAPROPTERIN DIHYDROCHLORIDE
     Dosage: DISSOLVE 1500 MG (THREE 500 MG POWDER PACKETS) IN 4 TO 8 OUNCES?OF WATER OR APPLE JUICE AND TAKE ONE
     Route: 048
  3. JAVYGTOR [Suspect]
     Active Substance: SAPROPTERIN DIHYDROCHLORIDE
     Indication: Phenylketonuria
     Route: 048
  4. ZYRTEC [Concomitant]
     Active Substance: CETIRIZINE HYDROCHLORIDE
     Indication: Product used for unknown indication
     Route: 065
  5. FAMOTIDINE 10 MG TABLET [Concomitant]
     Indication: Product used for unknown indication
     Route: 065
  6. VITAMIN D2 50 MCG CAPSULE [Concomitant]
     Indication: Product used for unknown indication
     Route: 065
  7. MICROGESTIN 1MG-20MCG TABLET [Concomitant]
     Indication: Product used for unknown indication
     Route: 065
  8. LINZESS [Concomitant]
     Active Substance: LINACLOTIDE
     Indication: Product used for unknown indication
     Route: 065
  9. PANTOPRAZOLE SODIUM 20 MG TABLET DR [Concomitant]
     Indication: Product used for unknown indication
     Route: 065
  10. AIMOVIG [Concomitant]
     Active Substance: ERENUMAB-AOOE
     Indication: Product used for unknown indication
     Route: 065
  11. IBUPROFEN 100 MG TAB CHEW [Concomitant]
     Indication: Product used for unknown indication
     Route: 065
  12. TYLENOL 325 MG TABLET [Concomitant]
     Indication: Product used for unknown indication
     Route: 065
  13. BENADRYL ITCH STOPPING [Concomitant]
     Indication: Product used for unknown indication
     Route: 065
  14. BENADRYL 25 MG CAPSULE [Concomitant]
     Indication: Product used for unknown indication
     Route: 065

REACTIONS (4)
  - Appetite disorder [Unknown]
  - Malaise [Unknown]
  - Eating disorder [Unknown]
  - Viral infection [Unknown]

NARRATIVE: CASE EVENT DATE: 20230101
